FAERS Safety Report 14909148 (Version 3)
Quarter: 2018Q2

REPORT INFORMATION
  Report Type: Report from Study
  Country: US (occurrence: US)
  Receive Date: 20180517
  Receipt Date: 20180615
  Transmission Date: 20180711
  Serious: Yes (Hospitalization, Other)
  Sender: FDA-Public Use
  Company Number: US-TESARO, INC.-US-2018TSO02330

PATIENT

DRUGS (3)
  1. ZEJULA [Suspect]
     Active Substance: NIRAPARIB
     Indication: METASTASES TO LIVER
  2. ZEJULA [Suspect]
     Active Substance: NIRAPARIB
     Indication: OVARIAN CANCER
     Dosage: 300 MG, QD
     Route: 048
     Dates: start: 20180424
  3. ZEJULA [Suspect]
     Active Substance: NIRAPARIB
     Indication: PANCREATIC CARCINOMA
     Dosage: 300 MG, QD
     Route: 048

REACTIONS (12)
  - Urinary retention [Not Recovered/Not Resolved]
  - Temperature intolerance [Not Recovered/Not Resolved]
  - Nausea [Recovering/Resolving]
  - Sepsis [Recovered/Resolved]
  - Pyrexia [Recovered/Resolved]
  - Ascites [Recovered/Resolved]
  - Fatigue [Not Recovered/Not Resolved]
  - Renal pain [Not Recovered/Not Resolved]
  - Back pain [Not Recovered/Not Resolved]
  - Fluid retention [Not Recovered/Not Resolved]
  - Emotional distress [Unknown]
  - Headache [Not Recovered/Not Resolved]

NARRATIVE: CASE EVENT DATE: 20180517
